FAERS Safety Report 12605343 (Version 2)
Quarter: 2016Q3

REPORT INFORMATION
  Report Type: Report from Study
  Country: GB (occurrence: GB)
  Receive Date: 20160729
  Receipt Date: 20160920
  Transmission Date: 20161109
  Serious: Yes (Hospitalization)
  Sender: FDA-Public Use
  Company Number: GB-ALEXION PHARMACEUTICALS INC-A201605465

PATIENT
  Age: 3 Year
  Sex: Female

DRUGS (5)
  1. TEICOPLANIN [Concomitant]
     Active Substance: TEICOPLANIN
     Indication: MORAXELLA INFECTION
     Dosage: 150 MG, QD
     Route: 042
  2. CLARITHROMYCIN. [Concomitant]
     Active Substance: CLARITHROMYCIN
     Indication: PRODUCT USED FOR UNKNOWN INDICATION
     Route: 065
  3. ECULIZUMAB [Suspect]
     Active Substance: ECULIZUMAB
     Indication: HAEMOLYTIC URAEMIC SYNDROME
     Dosage: 300 MG, Q2W
     Route: 042
     Dates: start: 20150721
  4. TEICOPLANIN [Concomitant]
     Active Substance: TEICOPLANIN
     Dosage: 90 MG, QD
     Route: 042
  5. CIPROFLOXACIN. [Concomitant]
     Active Substance: CIPROFLOXACIN
     Indication: PRODUCT USED FOR UNKNOWN INDICATION
     Route: 065

REACTIONS (1)
  - Moraxella infection [Recovered/Resolved]

NARRATIVE: CASE EVENT DATE: 20160626
